FAERS Safety Report 21303342 (Version 1)
Quarter: 2022Q3

REPORT INFORMATION
  Report Type: Spontaneous
  Country: ID (occurrence: ID)
  Receive Date: 20220907
  Receipt Date: 20220907
  Transmission Date: 20221027
  Serious: Yes (Hospitalization)
  Sender: FDA-Public Use
  Company Number: ID-002147023-NVSC2022ID192514

PATIENT

DRUGS (1)
  1. RUXOLITINIB [Suspect]
     Active Substance: RUXOLITINIB
     Indication: Essential thrombocythaemia
     Dosage: 10 MG, BID ( THERAPY HAS BEEN GIVEN FOR 6 MONTH)
     Route: 065

REACTIONS (3)
  - Product use in unapproved indication [Recovering/Resolving]
  - Pleural effusion [Recovering/Resolving]
  - Tuberculosis [Unknown]
